FAERS Safety Report 21576713 (Version 1)
Quarter: 2022Q4

REPORT INFORMATION
  Report Type: Report from Study
  Country: DE (occurrence: DE)
  Receive Date: 20221110
  Receipt Date: 20221110
  Transmission Date: 20230113
  Serious: Yes (Other)
  Sender: FDA-Public Use
  Company Number: DE-ALCEDIS-GLARG36

PATIENT
  Age: 40 Year
  Sex: Female
  Weight: 91 kg

DRUGS (2)
  1. INSULIN GLARGINE [Suspect]
     Active Substance: INSULIN GLARGINE
     Indication: Type 1 diabetes mellitus
     Dosage: 24 IU, QD
     Route: 058
     Dates: start: 20210330
  2. INSULIN GLARGINE [Suspect]
     Active Substance: INSULIN GLARGINE
     Dosage: DOSE REDUCED
     Route: 058

REACTIONS (4)
  - Angina pectoris [Unknown]
  - Aphonia [Unknown]
  - Hypoglycaemia [Unknown]
  - Hypoglycaemia [Recovered/Resolved]

NARRATIVE: CASE EVENT DATE: 20210530
